FAERS Safety Report 15961913 (Version 2)
Quarter: 2019Q1

REPORT INFORMATION
  Report Type: Report from Study
  Country: US (occurrence: US)
  Receive Date: 20190214
  Receipt Date: 20190218
  Transmission Date: 20190417
  Serious: Yes (Hospitalization, Other)
  Sender: FDA-Public Use
  Company Number: US-ELI_LILLY_AND_COMPANY-US201902002921

PATIENT
  Age: 80 Year
  Sex: Male

DRUGS (4)
  1. FLUOXETINE [Concomitant]
     Active Substance: FLUOXETINE HYDROCHLORIDE
     Indication: PRODUCT USED FOR UNKNOWN INDICATION
  2. HUMALOG [Suspect]
     Active Substance: INSULIN LISPRO
     Indication: DIABETES MELLITUS
     Dosage: 15 U, PRN (WITH EACH MEAL)
     Route: 058
     Dates: start: 201802
  3. HUMULIN N [Suspect]
     Active Substance: INSULIN HUMAN
     Indication: DIABETES MELLITUS
     Dosage: 80 U, DAILY
     Route: 058
     Dates: start: 201602
  4. HUMULIN N [Suspect]
     Active Substance: INSULIN HUMAN
     Indication: DIABETES MELLITUS
     Dosage: 80 U, DAILY
     Route: 058
     Dates: start: 201602

REACTIONS (5)
  - Sepsis [Recovering/Resolving]
  - Visual impairment [Not Recovered/Not Resolved]
  - Cardiac disorder [Recovering/Resolving]
  - Pneumonia [Recovering/Resolving]
  - Gastrointestinal wall thinning [Unknown]

NARRATIVE: CASE EVENT DATE: 201809
